FAERS Safety Report 9144394 (Version 3)
Quarter: 2013Q2

REPORT INFORMATION
  Report Type: Spontaneous
  Country: CA (occurrence: CA)
  Receive Date: 20130306
  Receipt Date: 20130419
  Transmission Date: 20140414
  Serious: Yes (Other)
  Sender: FDA-Public Use
  Company Number: CA-ROCHE-1198063

PATIENT
  Age: 75 Year
  Sex: Female

DRUGS (5)
  1. LUCENTIS [Suspect]
     Indication: AGE-RELATED MACULAR DEGENERATION
     Route: 050
     Dates: start: 20120427
  2. LUCENTIS [Suspect]
     Route: 050
     Dates: start: 20130125, end: 20130125
  3. CRESTOR [Concomitant]
  4. LORAZEPAM [Concomitant]
  5. ASPIRIN [Concomitant]

REACTIONS (1)
  - Reversible ischaemic neurological deficit [Recovered/Resolved]
